FAERS Safety Report 9159921 (Version 2)
Quarter: 2013Q1

REPORT INFORMATION
  Report Type: Spontaneous
  Country: CI (occurrence: None)
  Receive Date: 20130219
  Receipt Date: 20130307
  Transmission Date: 20140127
  Serious: Yes (Other)
  Sender: FDA-Public Use
  Company Number: 2013P1002040

PATIENT
  Age: 4 Year
  Sex: Male

DRUGS (2)
  1. LEVOFLOXACIN [Suspect]
     Indication: MYCOBACTERIUM ULCERANS INFECTION
  2. RIFAMPICIN [Suspect]
     Indication: MYCOBACTERIUM ULCERANS INFECTION

REACTIONS (3)
  - Mycobacterium ulcerans infection [None]
  - Condition aggravated [None]
  - Paradoxical drug reaction [None]
